FAERS Safety Report 7953628-6 (Version None)
Quarter: 2011Q4

REPORT INFORMATION
  Report Type: 
  Country: None (occurrence: None)
  Receive Date: 20111202
  Receipt Date: 20111122
  Transmission Date: 20120403
  Serious: Yes (Other)
  Sender: FDA-Public Use
  Company Number: US-ELI_LILLY_AND_COMPANY-US201111007857

PATIENT
  Age: 24 Year
  Sex: Female

DRUGS (4)
  1. LANTUS [Concomitant]
     Dosage: 10 U, EACH EVENING
  2. HUMALOG [Suspect]
     Indication: DIABETES MELLITUS
     Dosage: 8 U, EVERY 3 HRS
     Dates: start: 20111120
  3. HUMULIN N [Suspect]
     Indication: DIABETES MELLITUS
     Dosage: 20 U, BID
     Dates: start: 20111119, end: 20111120
  4. HUMULIN R [Suspect]
     Indication: DIABETES MELLITUS
     Dosage: 15 U, BID
     Dates: start: 20111119, end: 20111120

REACTIONS (6)
  - OEDEMA PERIPHERAL [None]
  - LIP SWELLING [None]
  - SWELLING FACE [None]
  - BLOOD GLUCOSE INCREASED [None]
  - DRUG INEFFECTIVE [None]
  - DIABETES MELLITUS INADEQUATE CONTROL [None]
